FAERS Safety Report 6637038-X (Version None)
Quarter: 2010Q1

REPORT INFORMATION
  Report Type: 
  Country: None (occurrence: None)
  Receive Date: 20100316
  Receipt Date: 20100304
  Transmission Date: 20100710
  Serious: No
  Sender: FDA-Public Use
  Company Number: US-B.I. PHARMACEUTICALS,INC./RIDGEFIELD-2010-BP-01775BP

PATIENT
  Sex: Female

DRUGS (7)
  1. SPIRIVA [Suspect]
     Indication: CHRONIC OBSTRUCTIVE PULMONARY DISEASE
     Dosage: 18 MCG
     Route: 055
     Dates: start: 20090824, end: 20100206
  2. OMEPRAZOLE [Concomitant]
     Dosage: 20 MG
  3. GEMFIBROZIL [Concomitant]
     Dosage: 60 MG
  4. ALENDRONATE SODIUM [Concomitant]
     Dosage: 10 MG
  5. SIMVASTATIN [Concomitant]
     Dosage: 10 MG
  6. BENAZEPRIL HYDROCHLORIDE [Concomitant]
     Dosage: 10 MG
  7. LEVOTHYROXINE SODIUM [Concomitant]
     Dosage: 88 MCG

REACTIONS (1)
  - HAEMOPTYSIS [None]
